FAERS Safety Report 8473887-3 (Version None)
Quarter: 2012Q2

REPORT INFORMATION
  Report Type: 
  Country: None (occurrence: None)
  Receive Date: 20120628
  Receipt Date: 20120525
  Transmission Date: 20120825
  Serious: Yes (Other)
  Sender: FDA-Public Use
  Company Number: US-MYLANLABS-2012S1001118

PATIENT
  Age: 57 Year
  Sex: Female

DRUGS (19)
  1. BENZTROPINE MESYLATE [Concomitant]
  2. DOCUSATE [Concomitant]
  3. CEPHALEXIN [Suspect]
     Dosage: 1 CAPSULE DAILY FOR 3 MONTHS
     Route: 048
     Dates: start: 20111211
  4. FERROUS SULFATE TAB [Concomitant]
  5. BISOPROLOL FUMARATE [Concomitant]
  6. BUSPIRONE HCL [Concomitant]
  7. LEVOTHYROXINE [Concomitant]
  8. SEROQUEL [Concomitant]
     Dosage: AND 300MG HS
  9. CLOZAPINE [Suspect]
     Route: 048
     Dates: start: 20110401, end: 20120111
  10. DEPAKOTE ER [Concomitant]
  11. CEPHALEXIN [Suspect]
     Indication: BLADDER DISORDER
     Dosage: 1 CAPSULE DAILY FOR 3 MONTHS
     Route: 048
     Dates: start: 20111211
  12. IMPRAMINE HCL [Concomitant]
  13. HYDROXYZINE PAM [Concomitant]
  14. LIPITOR [Concomitant]
  15. OMEPRAZOLE [Concomitant]
  16. PREMARIN [Concomitant]
  17. CLOZAPINE [Suspect]
     Route: 048
     Dates: start: 20120112
  18. ASPIRIN [Concomitant]
  19. VENLAFAXINE PROLONGED RELEASE CAPSULES [Concomitant]

REACTIONS (1)
  - GRANULOCYTOPENIA [None]
